FAERS Safety Report 12327983 (Version 1)
Quarter: 2016Q2

REPORT INFORMATION
  Report Type: Spontaneous
  Country: US (occurrence: US)
  Receive Date: 20160503
  Receipt Date: 20160503
  Transmission Date: 20160815
  Serious: Yes (Hospitalization)
  Sender: FDA-Public Use
  Company Number: US-ALKERMES INC.-ALK-2016-001104

PATIENT
  Age: 49 Year
  Sex: Female
  Weight: 76.64 kg

DRUGS (2)
  1. VIVITROL [Suspect]
     Active Substance: NALTREXONE
     Indication: ALCOHOLISM
     Dosage: 380 MG, QMO
     Route: 030
     Dates: start: 20160418
  2. TOPAMAX [Concomitant]
     Active Substance: TOPIRAMATE
     Indication: ALCOHOLISM
     Dosage: 1 DF, QD

REACTIONS (5)
  - Confusional state [Not Recovered/Not Resolved]
  - Anxiety [Unknown]
  - Mental status changes [Not Recovered/Not Resolved]
  - Insomnia [Unknown]
  - Seasonal allergy [Unknown]

NARRATIVE: CASE EVENT DATE: 201604
